FAERS Safety Report 6388861-0 (Version None)
Quarter: 2009Q4

REPORT INFORMATION
  Report Type: 
  Country: None (occurrence: None)
  Receive Date: 20091005
  Receipt Date: 20090924
  Transmission Date: 20100525
  Serious: Yes (Life-Threatening, Hospitalization)
  Sender: FDA-Public Use
  Company Number: JP-AMGEN-US347336

PATIENT
  Sex: Female
  Weight: 67 kg

DRUGS (3)
  1. ENBREL [Suspect]
     Indication: RHEUMATOID ARTHRITIS
     Route: 058
     Dates: start: 20070601
  2. ENBREL [Suspect]
     Indication: SCLERODERMA
  3. UNSPECIFIED STEROIDS [Concomitant]

REACTIONS (1)
  - MICROSCOPIC POLYANGIITIS [None]
